FAERS Safety Report 18746824 (Version 1)
Quarter: 2021Q1

REPORT INFORMATION
  Report Type: Spontaneous
  Country: AT (occurrence: AT)
  Receive Date: 20210115
  Receipt Date: 20210115
  Transmission Date: 20210419
  Serious: Yes (Hospitalization, Other)
  Sender: FDA-Public Use
  Company Number: AT-ROCHE-2748720

PATIENT
  Age: 57 Year
  Sex: Female

DRUGS (2)
  1. XELODA [Suspect]
     Active Substance: CAPECITABINE
     Indication: COLON CANCER
     Dosage: CAPECITABINE/ OXALIPLATIN RECEIVED ADJUVANT.
     Route: 065
     Dates: start: 20180117
  2. OXALIPLATIN. [Concomitant]
     Active Substance: OXALIPLATIN
     Indication: COLON CANCER
     Dosage: CAPECITABINE/ OXALIPLATIN RECEIVED ADJUVANT.
     Dates: start: 20180117

REACTIONS (13)
  - C-reactive protein increased [Recovered/Resolved]
  - Asthenia [Recovered/Resolved]
  - Hypoproteinaemia [Recovered/Resolved]
  - Hypokalaemia [Recovered/Resolved]
  - Eating disorder [Recovered/Resolved]
  - Pain [Recovered/Resolved]
  - Feeding disorder [Recovered/Resolved]
  - General physical health deterioration [Recovered/Resolved]
  - Mucosal inflammation [Recovered/Resolved]
  - White blood cell count decreased [Recovered/Resolved]
  - Diarrhoea [Recovered/Resolved]
  - Abdominal pain [Recovered/Resolved]
  - Vomiting [Recovered/Resolved]

NARRATIVE: CASE EVENT DATE: 201802
